FAERS Safety Report 10086143 (Version 1)
Quarter: 2014Q2

REPORT INFORMATION
  Report Type: Spontaneous
  Country: FR (occurrence: None)
  Receive Date: 20140416
  Receipt Date: 20140416
  Transmission Date: 20141212
  Serious: Yes (Hospitalization)
  Sender: FDA-Public Use
  Company Number: 7280609

PATIENT
  Age: 53 Year
  Sex: Female

DRUGS (1)
  1. LEVOTHYROX (LEVOTHYROXINE SODIUM) (TABLET) (LEVOTHYROXINE SODIUM) [Suspect]
     Indication: PRODUCT USED FOR UNKNOWN INDICATION
     Dosage: 10 YEARS AGO

REACTIONS (7)
  - Dehydration [None]
  - Thyroid function test abnormal [None]
  - Pain in extremity [None]
  - Dry skin [None]
  - Mucosal dryness [None]
  - Fatigue [None]
  - Hypersomnia [None]
